FAERS Safety Report 6019809-6 (Version None)
Quarter: 2008Q4

REPORT INFORMATION
  Report Type: 
  Country: None (occurrence: None)
  Receive Date: 20081224
  Receipt Date: 20081217
  Transmission Date: 20090506
  Serious: Yes (Other)
  Sender: FDA-Public Use
  Company Number: US-ROXANE LABORATORIES, INC.-2008-RO-00448RO

PATIENT
  Age: 27 Year
  Sex: Male

DRUGS (11)
  1. METHADON HCL TAB [Suspect]
     Dosage: 30MG
     Route: 048
  2. HYDROMORPHONE [Suspect]
     Indication: PAIN
     Route: 042
  3. HYDROMORPHONE [Suspect]
     Dosage: 45MG
     Route: 042
  4. GABAPENTIN [Suspect]
     Dosage: 3600MG
  5. AMITRIPTYLINE HCL [Suspect]
     Dosage: 75MG
  6. CELECOXIB [Suspect]
     Dosage: 400MG
  7. FENTANYL-100 [Suspect]
     Indication: BREAKTHROUGH PAIN
     Route: 042
  8. FENTANYL-100 [Suspect]
     Dosage: 100MCG
     Route: 042
  9. MEMANTINE HCL [Suspect]
     Indication: PAIN
     Dosage: 20MG
  10. CLONIDINE [Concomitant]
     Indication: DRUG WITHDRAWAL SYNDROME
     Route: 062
  11. BETA BLOCKER THERAPY [Concomitant]
     Indication: DRUG WITHDRAWAL SYNDROME

REACTIONS (3)
  - DRUG WITHDRAWAL SYNDROME [None]
  - PAIN [None]
  - PHANTOM PAIN [None]
